FAERS Safety Report 17126334 (Version 1)
Quarter: 2019Q4

REPORT INFORMATION
  Report Type: Spontaneous
  Country: US (occurrence: US)
  Receive Date: 20191209
  Receipt Date: 20191209
  Transmission Date: 20200122
  Serious: No
  Sender: FDA-Public Use
  Company Number: US-GLAXOSMITHKLINE-US2019221241

PATIENT
  Age: 62 Year
  Sex: Female

DRUGS (1)
  1. TRANSDERM SCOP [Suspect]
     Active Substance: SCOPOLAMINE
     Indication: PROCEDURAL NAUSEA
     Dosage: 1 APPLICATION
     Dates: start: 20190724, end: 20190725

REACTIONS (2)
  - Vision blurred [Unknown]
  - Mydriasis [Unknown]

NARRATIVE: CASE EVENT DATE: 20190725
